FAERS Safety Report 9374833 (Version 2)
Quarter: 2014Q1

REPORT INFORMATION
  Report Type: Spontaneous
  Country: US (occurrence: US)
  Receive Date: 20130628
  Receipt Date: 20140128
  Transmission Date: 20141002
  Serious: Yes (Disabling)
  Sender: FDA-Public Use
  Company Number: US-BAYER-2013-076419

PATIENT
  Age: 29 Year
  Sex: Female

DRUGS (3)
  1. MIRENA [Suspect]
     Dosage: 20 MCG/24HR, CONT
     Route: 015
     Dates: start: 20100225, end: 20120619
  2. FERROUS SULFATE [Concomitant]
     Dosage: 160 MG, DAILY
     Route: 048
  3. PRENATAL VITAMINS [VIT C,VIT H,MIN NOS,VIT PP,RETINOL,VIT E,VIT B [Concomitant]
     Dosage: 1 TAB DAILY
     Route: 048

REACTIONS (18)
  - Device dislocation [None]
  - Procedural pain [None]
  - Abdominal pain lower [None]
  - Alopecia [None]
  - Amnesia [None]
  - Dysmenorrhoea [None]
  - Weight increased [None]
  - Libido decreased [None]
  - Injury [None]
  - Emotional distress [None]
  - Anxiety [None]
  - Deformity [None]
  - Anhedonia [None]
  - General physical health deterioration [None]
  - Pain [None]
  - Inflammation [None]
  - Medical device complication [None]
  - Arthritis [None]
